FAERS Safety Report 9274753 (Version 2)
Quarter: 2013Q4

REPORT INFORMATION
  Report Type: Spontaneous
  Country: FR (occurrence: FR)
  Receive Date: 20130507
  Receipt Date: 20131014
  Transmission Date: 20140711
  Serious: Yes (Other)
  Sender: FDA-Public Use
  Company Number: FR-009507513-1305FRA001430

PATIENT
  Age: 51 Year
  Sex: Male

DRUGS (11)
  1. NORSET [Suspect]
     Indication: PRODUCT USED FOR UNKNOWN INDICATION
     Route: 048
  2. SERESTA [Suspect]
     Indication: PRODUCT USED FOR UNKNOWN INDICATION
  3. VALIUM [Suspect]
     Indication: PRODUCT USED FOR UNKNOWN INDICATION
  4. MOGADON [Suspect]
     Indication: PRODUCT USED FOR UNKNOWN INDICATION
  5. OMEPRAZOLE [Suspect]
     Indication: PRODUCT USED FOR UNKNOWN INDICATION
     Dosage: UNK
     Dates: start: 20130328
  6. KARDEGIC [Suspect]
     Indication: PRODUCT USED FOR UNKNOWN INDICATION
     Dosage: UNK
     Dates: start: 20130328
  7. NOZINAN [Interacting]
     Indication: PRODUCT USED FOR UNKNOWN INDICATION
     Dosage: 25 MG, QD
     Dates: end: 201301
  8. NOZINAN [Interacting]
     Dosage: 50 MG, QD
     Dates: start: 201301, end: 20130406
  9. NOZINAN [Interacting]
     Dosage: 100 UNK, UNK
     Dates: start: 20130406, end: 20130517
  10. ZYPREXA [Interacting]
     Indication: PRODUCT USED FOR UNKNOWN INDICATION
  11. TERALITHE [Interacting]
     Indication: PRODUCT USED FOR UNKNOWN INDICATION

REACTIONS (3)
  - Blood creatine phosphokinase increased [Unknown]
  - Dyskinesia [Unknown]
  - Myalgia [Unknown]
